FAERS Safety Report 8805726 (Version 2)
Quarter: 2012Q4

REPORT INFORMATION
  Report Type: 
  Country: GR (occurrence: GR)
  Receive Date: 20120924
  Receipt Date: 20121024
  Transmission Date: 20130627
  Serious: Yes (Death, Hospitalization)
  Sender: FDA-Public Use
  Company Number: GR-ROCHE-1133796

PATIENT
  Age: 43 Year
  Sex: Female
  Weight: 50 kg

DRUGS (9)
  1. MABTHERA [Suspect]
     Indication: DIFFUSE LARGE B-CELL LYMPHOMA STAGE IV
     Route: 042
     Dates: start: 20120525, end: 20120622
  2. MABTHERA [Suspect]
     Route: 042
     Dates: start: 200909
  3. CYCLOPHOSPHAMIDE [Concomitant]
     Indication: DIFFUSE LARGE B-CELL LYMPHOMA STAGE IV
     Route: 065
     Dates: start: 20120525, end: 20120622
  4. CYCLOPHOSPHAMIDE [Concomitant]
     Route: 065
     Dates: start: 200909
  5. EPIRUBICIN [Concomitant]
     Indication: DIFFUSE LARGE B-CELL LYMPHOMA STAGE IV
     Route: 065
     Dates: start: 20120525, end: 20120622
  6. EPIRUBICIN [Concomitant]
     Route: 065
     Dates: start: 200909
  7. ONCOVIN [Concomitant]
     Indication: DIFFUSE LARGE B-CELL LYMPHOMA STAGE IV
     Route: 065
     Dates: start: 20120525, end: 20120622
  8. ONCOVIN [Concomitant]
     Route: 065
     Dates: start: 200909
  9. PREDNISONE [Concomitant]
     Indication: DIFFUSE LARGE B-CELL LYMPHOMA STAGE IV
     Route: 065
     Dates: start: 200909

REACTIONS (2)
  - Progressive multifocal leukoencephalopathy [Fatal]
  - Non-Hodgkin^s lymphoma recurrent [Not Recovered/Not Resolved]
